FAERS Safety Report 12459821 (Version 1)
Quarter: 2016Q2

REPORT INFORMATION
  Report Type: Report from Study
  Country: US (occurrence: US)
  Receive Date: 20160613
  Receipt Date: 20160613
  Transmission Date: 20160815
  Serious: Yes (Hospitalization)
  Sender: FDA-Public Use
  Company Number: US-PFIZER INC-2016287734

PATIENT
  Sex: Female

DRUGS (40)
  1. IRINOTECAN HCL [Suspect]
     Active Substance: IRINOTECAN HYDROCHLORIDE
     Dosage: DAY 1 OF CYCLE 02, 180 MG/M2, BSA 2.04 M2, TOTAL DAILY DOSE 367.00 MG
     Dates: start: 20160210
  2. BEVACIZUMAB [Suspect]
     Active Substance: BEVACIZUMAB
     Dosage: DAY 1 OF CYCLE 02, 5 MG/KG, ACTUAL DOSE 440 MG
     Dates: start: 20160210
  3. BEVACIZUMAB [Suspect]
     Active Substance: BEVACIZUMAB
     Dosage: DAY 1 OF CYCLE 05, 5 MG/KG, ACTUAL DOSE 440 MG
     Dates: start: 20160323
  4. TAS-102 [Suspect]
     Active Substance: TIPIRACIL HYDROCHLORIDE\TRIFLURIDINE
     Dosage: DAY 1 OF CYCLE 01, 25 MG/M2, BSA 2.04 M2, TOTAL DAILY DOSE 100 MG
     Dates: start: 20160127, end: 20160129
  5. ZOFRAN [Concomitant]
     Active Substance: ONDANSETRON HYDROCHLORIDE
     Indication: NAUSEA
     Dosage: UNK
     Dates: start: 20160127
  6. BEVACIZUMAB [Suspect]
     Active Substance: BEVACIZUMAB
     Dosage: DAY 1 OF CYCLE 03, 5 MG/KG, ACTUAL DOSE 440 MG
     Dates: start: 20160225
  7. TAS-102 [Suspect]
     Active Substance: TIPIRACIL HYDROCHLORIDE\TRIFLURIDINE
     Dosage: DAY 1 OF CYCLE 05, 25 MG/M2, BSA 2.04 M2, TOTAL DAILY DOSE 100 MG
     Dates: start: 20160323, end: 20160327
  8. IRINOTECAN HCL [Suspect]
     Active Substance: IRINOTECAN HYDROCHLORIDE
     Dosage: DAY 1 OF CYCLE 03, 180 MG/M2, BSA 2.04 M2, TOTAL DAILY DOSE 367.00 MG
     Dates: start: 20160225
  9. HUMULIN N [Concomitant]
     Active Substance: INSULIN HUMAN
     Indication: TYPE 2 DIABETES MELLITUS
     Dosage: UNK
     Dates: start: 20000101
  10. IMODIUM [Concomitant]
     Active Substance: LOPERAMIDE HYDROCHLORIDE
     Indication: DIARRHOEA
     Dosage: UNK
     Dates: start: 20160210
  11. BEVACIZUMAB [Suspect]
     Active Substance: BEVACIZUMAB
     Dosage: DAY 1 OF CYCLE 01, 5 MG/KG, ACTUAL DOSE 440 MG
     Dates: start: 20160127
  12. BEVACIZUMAB [Suspect]
     Active Substance: BEVACIZUMAB
     Dosage: DAY 1 OF CYCLE 06, 5 MG/KG, ACTUAL DOSE 440 MG
     Dates: start: 20160406
  13. TAS-102 [Suspect]
     Active Substance: TIPIRACIL HYDROCHLORIDE\TRIFLURIDINE
     Dosage: DAY 1 OF CYCLE 02, 25 MG/M2, BSA 2.04 M2, TOTAL DAILY DOSE 100 MG
     Dates: start: 20160210, end: 20160214
  14. PROMETHAZINE [Concomitant]
     Active Substance: PROMETHAZINE\PROMETHAZINE HYDROCHLORIDE
     Indication: NAUSEA
     Dosage: UNK
     Dates: start: 20160201
  15. SUPPLEMENTAL OXYGEN [Concomitant]
     Active Substance: UNSPECIFIED INGREDIENT
     Indication: PULMONARY EMBOLISM
     Dosage: UNK
     Dates: start: 20160331
  16. TAS-102 [Suspect]
     Active Substance: TIPIRACIL HYDROCHLORIDE\TRIFLURIDINE
     Dosage: DAY 1 OF CYCLE 03, 25 MG/M2, BSA 2.04 M2, TOTAL DAILY DOSE 100 MG
     Dates: start: 20160225, end: 20160229
  17. TAS-102 [Suspect]
     Active Substance: TIPIRACIL HYDROCHLORIDE\TRIFLURIDINE
     Dosage: DAY 1 OF CYCLE 04, 25 MG/M2, BSA 2.04 M2, TOTAL DAILY DOSE 100 MG
     Dates: start: 20160309, end: 20160313
  18. TAS-102 [Suspect]
     Active Substance: TIPIRACIL HYDROCHLORIDE\TRIFLURIDINE
     Dosage: DAY 1 OF CYCLE 06, 25 MG/M2, BSA 2.04 M2, TOTAL DAILY DOSE 100 MG
     Dates: start: 20160406, end: 20160410
  19. TAS-102 [Suspect]
     Active Substance: TIPIRACIL HYDROCHLORIDE\TRIFLURIDINE
     Dosage: DAY 1 OF CYCLE 07, 25 MG/M2, BSA 2.04 M2, TOTAL DAILY DOSE 100 MG
     Dates: start: 20160420
  20. TAS-102 [Suspect]
     Active Substance: TIPIRACIL HYDROCHLORIDE\TRIFLURIDINE
     Dosage: DAY 1 OF CYCLE 08, 25 MG/M2, BSA 2.04 M2, TOTAL DAILY DOSE 100 MG
     Dates: start: 20160504
  21. LOMOTIL [Concomitant]
     Active Substance: ATROPINE SULFATE\DIPHENOXYLATE HYDROCHLORIDE
     Indication: DIARRHOEA
     Dosage: [ATROPINE SULFATE, 2.5 MG]/[DIPHENOXYLATE HYDROCHLORIDE, 0.025 MG]
     Dates: start: 20160215
  22. IRINOTECAN HCL [Suspect]
     Active Substance: IRINOTECAN HYDROCHLORIDE
     Dosage: DAY 1 OF CYCLE 05, 180 MG/M2, BSA 2.04 M2, TOTAL DAILY DOSE 367.00 MG
     Dates: start: 20160323
  23. IRINOTECAN HCL [Suspect]
     Active Substance: IRINOTECAN HYDROCHLORIDE
     Dosage: DAY 1 OF CYCLE 06, 180 MG/M2, BSA 2.04 M2, TOTAL DAILY DOSE 367.00 MG
     Dates: start: 20160406
  24. IRINOTECAN HCL [Suspect]
     Active Substance: IRINOTECAN HYDROCHLORIDE
     Dosage: DAY 1 OF CYCLE 08, 180 MG/M2, BSA 2.04 M2, TOTAL DAILY DOSE 367.00 MG
     Dates: start: 20160504
  25. BEVACIZUMAB [Suspect]
     Active Substance: BEVACIZUMAB
     Dosage: DAY 1 OF CYCLE 08, 5 MG/KG, ACTUAL DOSE 440 MG
     Dates: start: 20160504
  26. PROMETHAZINE [Concomitant]
     Active Substance: PROMETHAZINE\PROMETHAZINE HYDROCHLORIDE
     Indication: VOMITING
  27. OXYCODONE [Concomitant]
     Active Substance: OXYCODONE
     Indication: BACK PAIN
     Dosage: UNK
     Dates: start: 20151202
  28. EMLA [Concomitant]
     Active Substance: LIDOCAINE\PRILOCAINE
     Indication: PROPHYLAXIS
     Dosage: UNK
     Dates: start: 20150730
  29. FOSAPREPITANT [Concomitant]
     Active Substance: FOSAPREPITANT
     Indication: NAUSEA
     Dosage: UNK
     Dates: start: 20160210
  30. APIXABAN [Concomitant]
     Active Substance: APIXABAN
     Indication: PULMONARY EMBOLISM
     Dosage: UNK
     Dates: start: 20160331
  31. IRINOTECAN HCL [Suspect]
     Active Substance: IRINOTECAN HYDROCHLORIDE
     Dosage: DAY 1 OF CYCLE 01, 180 MG/M2, BSA 2.04 M2, TOTAL DAILY DOSE 367.00 MG
     Dates: start: 20160127
  32. BEVACIZUMAB [Suspect]
     Active Substance: BEVACIZUMAB
     Dosage: DAY 1 OF CYCLE 07, 5 MG/KG, ACTUAL DOSE 440 MG
     Dates: start: 20160420
  33. LISINOPRIL. [Concomitant]
     Active Substance: LISINOPRIL
     Indication: HYPERTENSION
     Dosage: UNK
     Dates: start: 20140101
  34. HUMULIN R [Concomitant]
     Active Substance: INSULIN HUMAN
     Indication: TYPE 2 DIABETES MELLITUS
     Dosage: UNK
     Dates: start: 20000101
  35. CODEINE-GUAIFENESIN [Concomitant]
     Active Substance: CODEINE PHOSPHATE\GUAIFENESIN
     Indication: COUGH
     Dosage: CODEINE 10MG-GUAIFENESIN, 100MG/5 ML ORAL LIQUID
     Route: 048
     Dates: start: 20160114
  36. TYLENOL [Concomitant]
     Active Substance: ACETAMINOPHEN
     Indication: BACK PAIN
     Dosage: UNK
     Dates: start: 20160210
  37. IRINOTECAN HCL [Suspect]
     Active Substance: IRINOTECAN HYDROCHLORIDE
     Dosage: DAY 1 OF CYCLE 04, 180 MG/M2, BSA 2.04 M2, TOTAL DAILY DOSE 367.00 MG
     Dates: start: 20160309
  38. IRINOTECAN HCL [Suspect]
     Active Substance: IRINOTECAN HYDROCHLORIDE
     Dosage: DAY 1 OF CYCLE 07, 180 MG/M2, BSA 2.04 M2, TOTAL DAILY DOSE 367.00 MG
     Dates: start: 20160420
  39. BEVACIZUMAB [Suspect]
     Active Substance: BEVACIZUMAB
     Dosage: DAY 1 OF CYCLE 04, 5 MG/KG, ACTUAL DOSE 440 MG
     Dates: start: 20160309
  40. DECADRON [Concomitant]
     Active Substance: DEXAMETHASONE
     Indication: NAUSEA
     Dosage: UNK
     Dates: start: 20160203

REACTIONS (1)
  - Diabetic ketoacidosis [Recovered/Resolved]

NARRATIVE: CASE EVENT DATE: 20160523
